FAERS Safety Report 22184199 (Version 2)
Quarter: 2023Q2

REPORT INFORMATION
  Report Type: Report from Study
  Country: US (occurrence: US)
  Receive Date: 20230407
  Receipt Date: 20230410
  Transmission Date: 20230722
  Serious: No
  Sender: FDA-Public Use
  Company Number: US-ABBVIE-4320218

PATIENT
  Age: 70 Year
  Sex: Male
  Weight: 71 kg

DRUGS (3)
  1. SKYRIZI [Suspect]
     Active Substance: RISANKIZUMAB-RZAA
     Indication: Psoriasis
     Dosage: 04 NOV 2022
     Route: 058
  2. SKYRIZI [Suspect]
     Active Substance: RISANKIZUMAB-RZAA
     Indication: Psoriatic arthropathy
  3. CLOBETASOL [Concomitant]
     Active Substance: CLOBETASOL
     Indication: Psoriasis
     Dosage: 0.05%
     Route: 061
     Dates: start: 20230211

REACTIONS (3)
  - Latent tuberculosis [Recovered/Resolved with Sequelae]
  - Condition aggravated [Unknown]
  - Skin disorder [Unknown]

NARRATIVE: CASE EVENT DATE: 20221101
